FAERS Safety Report 14610659 (Version 2)
Quarter: 2018Q1

REPORT INFORMATION
  Report Type: Report from Study
  Country: None (occurrence: TW)
  Receive Date: 20180307
  Receipt Date: 20180329
  Transmission Date: 20180509
  Serious: Yes (Hospitalization, Other)
  Sender: FDA-Public Use
  Company Number: TW-ABBVIE-18K-153-2275969-00

PATIENT
  Age: 65 Year
  Sex: Female
  Weight: 63 kg

DRUGS (4)
  1. HUMIRA [Suspect]
     Active Substance: ADALIMUMAB
     Indication: CROHN^S DISEASE
     Route: 058
     Dates: start: 20171206
  2. PREDNISOLONE. [Concomitant]
     Active Substance: PREDNISOLONE
     Indication: PRODUCT USED FOR UNKNOWN INDICATION
     Dosage: 10-30 MG
     Dates: start: 20080530
  3. AZATHIOPRINE. [Concomitant]
     Active Substance: AZATHIOPRINE
     Indication: PRODUCT USED FOR UNKNOWN INDICATION
     Dosage: 50MG
     Dates: start: 20080530
  4. HUMIRA [Suspect]
     Active Substance: ADALIMUMAB
     Indication: CROHN^S DISEASE
     Route: 058
     Dates: start: 20150529

REACTIONS (14)
  - Haemoglobin decreased [Not Recovered/Not Resolved]
  - Limb injury [Recovering/Resolving]
  - White blood cell count increased [Recovering/Resolving]
  - Enterococcus test positive [Unknown]
  - Blood albumin decreased [Not Recovered/Not Resolved]
  - Red blood cell sedimentation rate increased [Not Recovered/Not Resolved]
  - Acinetobacter test positive [Unknown]
  - Fall [Recovering/Resolving]
  - Candida infection [Unknown]
  - Cataract [Recovering/Resolving]
  - Wound infection [Not Recovered/Not Resolved]
  - Limb injury [Unknown]
  - Tuberculosis [Recovering/Resolving]
  - Peripheral swelling [Recovering/Resolving]

NARRATIVE: CASE EVENT DATE: 201701
